FAERS Safety Report 14871792 (Version 1)
Quarter: 2018Q2

REPORT INFORMATION
  Report Type: Spontaneous
  Country: US (occurrence: US)
  Receive Date: 20180509
  Receipt Date: 20180509
  Transmission Date: 20180711
  Serious: Yes (Hospitalization)
  Sender: FDA-Public Use
  Company Number: US-WALMART PREMIER BRANDS OF AMERICA-2047500

PATIENT
  Age: 68 Year
  Sex: Female
  Weight: 70.46 kg

DRUGS (3)
  1. EQUATE CORN AND CALLUS REMOVER [Suspect]
     Active Substance: SALICYLIC ACID
     Indication: SKIN LESION REMOVAL
     Route: 061
     Dates: start: 20171201, end: 20171215
  2. FUROSEMIDE. [Concomitant]
     Active Substance: FUROSEMIDE
  3. GABAPENTIN. [Concomitant]
     Active Substance: GABAPENTIN

REACTIONS (2)
  - Dry gangrene [Unknown]
  - Skin abrasion [Unknown]

NARRATIVE: CASE EVENT DATE: 20171215
